FAERS Safety Report 20517332 (Version 1)
Quarter: 2022Q1

REPORT INFORMATION
  Report Type: Spontaneous
  Country: CA (occurrence: CA)
  Receive Date: 20220225
  Receipt Date: 20220225
  Transmission Date: 20220424
  Serious: Yes (Other)
  Sender: FDA-Public Use
  Company Number: None

PATIENT
  Age: 43 Year
  Sex: Male
  Weight: 73 kg

DRUGS (3)
  1. METHOTREXATE [Suspect]
     Active Substance: METHOTREXATE
     Indication: Product used for unknown indication
  2. LEFLUNOMIDE [Concomitant]
     Active Substance: LEFLUNOMIDE
     Dosage: EVERY 1 DAYS
  3. CELECOXIB [Concomitant]
     Active Substance: CELECOXIB
     Dosage: 2 EVERY 1 DAYS

REACTIONS (10)
  - C-reactive protein increased [Recovered/Resolved]
  - Drug resistance [Recovered/Resolved]
  - Inflammation [Recovered/Resolved]
  - Inflammatory pain [Recovered/Resolved]
  - Musculoskeletal stiffness [Recovered/Resolved]
  - Nausea [Recovered/Resolved]
  - Psoriasis [Recovered/Resolved]
  - Sacroiliitis [Recovered/Resolved]
  - Spinal pain [Recovered/Resolved]
  - Uveitis [Recovered/Resolved]
